FAERS Safety Report 5501742-7 (Version None)
Quarter: 2007Q4

REPORT INFORMATION
  Report Type: 
  Country: None (occurrence: None)
  Receive Date: 20071030
  Receipt Date: 20071023
  Transmission Date: 20080405
  Serious: Yes (Hospitalization, Other)
  Sender: FDA-Public Use
  Company Number: US-JNJFOC-20071003298

PATIENT
  Age: 71 Year
  Sex: Female
  Weight: 70.8 kg

DRUGS (12)
  1. LEVAQUIN [Suspect]
     Indication: DRUG USE FOR UNKNOWN INDICATION
     Route: 065
  2. TEMODAR [Suspect]
     Indication: GLIOBLASTOMA MULTIFORME
     Route: 048
  3. ASPIRIN [Suspect]
     Indication: DRUG USE FOR UNKNOWN INDICATION
     Route: 065
  4. DECADRON [Suspect]
     Indication: DRUG USE FOR UNKNOWN INDICATION
     Route: 065
  5. DIGOXIN [Suspect]
     Indication: DRUG USE FOR UNKNOWN INDICATION
     Route: 065
  6. DUONEBS [Suspect]
     Indication: DRUG USE FOR UNKNOWN INDICATION
     Route: 065
  7. LASIX [Suspect]
     Indication: DRUG USE FOR UNKNOWN INDICATION
     Route: 065
  8. MUCOMYST [Suspect]
     Indication: DRUG USE FOR UNKNOWN INDICATION
     Route: 065
  9. COLACE [Concomitant]
     Route: 065
  10. LIPITOR [Concomitant]
     Route: 065
  11. LOVENOX [Concomitant]
     Route: 065
  12. METOPROLOL [Concomitant]
     Route: 065

REACTIONS (3)
  - HALLUCINATION [None]
  - TOXIC ENCEPHALOPATHY [None]
  - VISUAL DISTURBANCE [None]
